FAERS Safety Report 9280450 (Version 2)
Quarter: 2013Q2

REPORT INFORMATION
  Report Type: Spontaneous
  Country: US (occurrence: None)
  Receive Date: 20130503
  Receipt Date: 20130503
  Transmission Date: 20140414
  Serious: Yes (Hospitalization, Other)
  Sender: FDA-Public Use
  Company Number: ADR-2013-00751

PATIENT
  Age: 21 Year
  Sex: Male

DRUGS (1)
  1. BACLOFEN [Suspect]
     Indication: MUSCLE SPASTICITY

REACTIONS (12)
  - Implant site effusion [None]
  - Muscle spasms [None]
  - Tachycardia [None]
  - Tachypnoea [None]
  - Muscle twitching [None]
  - Hyperhidrosis [None]
  - Muscle spasticity [None]
  - Pyrexia [None]
  - Withdrawal syndrome [None]
  - Catheter site effusion [None]
  - Wound secretion [None]
  - No therapeutic response [None]
